FAERS Safety Report 4460909-X (Version None)
Quarter: 2004Q3

REPORT INFORMATION
  Report Type: 
  Country: None (occurrence: None)
  Receive Date: 20040928
  Receipt Date: 20040610
  Transmission Date: 20050211
  Serious: No
  Sender: FDA-Public Use
  Company Number: US-GLAXOSMITHKLINE-A0514121A

PATIENT
  Age: 6 Year
  Sex: Female

DRUGS (2)
  1. ADVAIR DISKUS 100/50 [Suspect]
     Indication: ASTHMA
     Dosage: 1PUFF TWICE PER DAY
     Route: 055
     Dates: start: 20040526, end: 20040608
  2. NO CONCURRENT MEDICATION [Concomitant]

REACTIONS (2)
  - HEADACHE [None]
  - SOCIAL AVOIDANT BEHAVIOUR [None]
